FAERS Safety Report 24176819 (Version 1)
Quarter: 2024Q3

REPORT INFORMATION
  Report Type: Spontaneous
  Country: US (occurrence: US)
  Receive Date: 20240806
  Receipt Date: 20240806
  Transmission Date: 20241017
  Serious: No
  Sender: SANOFI AVENTIS
  Company Number: US-SA-SAC20240801000602

PATIENT
  Sex: Female
  Weight: 124.72 kg

DRUGS (11)
  1. DUPIXENT [Suspect]
     Active Substance: DUPILUMAB
     Dosage: 300 MG, QOW
     Route: 058
  2. OMEPRAZOLE [Concomitant]
     Active Substance: OMEPRAZOLE
  3. MAGNESIUM [Concomitant]
     Active Substance: MAGNESIUM
  4. VITAMIN D2 [Concomitant]
     Active Substance: ERGOCALCIFEROL
  5. SPIRONOLACTONE [Concomitant]
     Active Substance: SPIRONOLACTONE
  6. GABAPENTIN [Concomitant]
     Active Substance: GABAPENTIN
     Dosage: UNK
  7. FUROSEMIDE [Concomitant]
     Active Substance: FUROSEMIDE
  8. MELOXICAM [Concomitant]
     Active Substance: MELOXICAM
  9. CLOPIDOGREL [Concomitant]
     Active Substance: CLOPIDOGREL BISULFATE
  10. AMPHETAMINE SULFATE [Concomitant]
     Active Substance: AMPHETAMINE SULFATE
  11. LISINOPRIL AND HYDROCHLOROTHIAZIDE [Concomitant]
     Active Substance: HYDROCHLOROTHIAZIDE\LISINOPRIL

REACTIONS (2)
  - Injection site pain [Not Recovered/Not Resolved]
  - Limb discomfort [Not Recovered/Not Resolved]
